FAERS Safety Report 6594318-4 (Version None)
Quarter: 2010Q1

REPORT INFORMATION
  Report Type: 
  Country: None (occurrence: None)
  Receive Date: 20100222
  Receipt Date: 20100210
  Transmission Date: 20100710
  Serious: Yes (Hospitalization)
  Sender: FDA-Public Use
  Company Number: CA-PFIZER INC-2010017893

PATIENT
  Age: 47 Year
  Sex: Male
  Weight: 91.4 kg

DRUGS (9)
  1. BLINDED *NO SUBJECT DRUG [Suspect]
     Indication: RENAL CELL CARCINOMA
     Dosage: SUNITINIB OR PLACEBO QD OF WEEKS 1-4
     Route: 048
     Dates: start: 20090213, end: 20100114
  2. BLINDED *PLACEBO [Suspect]
     Indication: RENAL CELL CARCINOMA
     Dosage: SUNITINIB OR PLACEBO QD OF WEEKS 1-4
     Route: 048
     Dates: start: 20090213, end: 20100114
  3. BLINDED *SORAFENIB [Suspect]
     Indication: RENAL CELL CARCINOMA
     Dosage: SUNITINIB OR PLACEBO QD OF WEEKS 1-4
     Route: 048
     Dates: start: 20090213, end: 20100114
  4. BLINDED SUNITINIB MALATE [Suspect]
     Indication: RENAL CELL CARCINOMA
     Dosage: SUNITINIB OR PLACEBO QD OF WEEKS 1-4
     Route: 048
     Dates: start: 20090213, end: 20100114
  5. BLINDED *NO SUBJECT DRUG [Suspect]
     Dosage: SORAFENIB OR PLACEBO BID
     Route: 048
     Dates: start: 20090213, end: 20100114
  6. BLINDED *PLACEBO [Suspect]
     Dosage: SORAFENIB OR PLACEBO BID
     Route: 048
     Dates: start: 20090213, end: 20100114
  7. BLINDED *SORAFENIB [Suspect]
     Dosage: SORAFENIB OR PLACEBO BID
     Route: 048
     Dates: start: 20090213, end: 20100114
  8. BLINDED SUNITINIB MALATE [Suspect]
     Dosage: SORAFENIB OR PLACEBO BID
     Route: 048
     Dates: start: 20090213, end: 20100114
  9. IBUPROFEN [Concomitant]

REACTIONS (1)
  - MYOCARDIAL INFARCTION [None]
